FAERS Safety Report 17680624 (Version 4)
Quarter: 2023Q1

REPORT INFORMATION
  Report Type: Report from Study
  Country: CA (occurrence: CA)
  Receive Date: 20200417
  Receipt Date: 20230114
  Transmission Date: 20230418
  Serious: Yes (Other)
  Sender: FDA-Public Use
  Company Number: NVSC2020CA102813

PATIENT
  Age: 69 Year
  Sex: Male

DRUGS (34)
  1. GLYCOPYRRONIUM\INDACATEROL [Suspect]
     Active Substance: GLYCOPYRRONIUM\INDACATEROL
     Indication: Migraine
     Dosage: 1 DOSAGE FORM, QD
  2. CARBAMAZEPINE [Suspect]
     Active Substance: CARBAMAZEPINE
     Indication: Migraine
     Dosage: 1 DOSAGE FORM (LUNCH)
     Route: 065
  3. CARBAMAZEPINE [Suspect]
     Active Substance: CARBAMAZEPINE
     Dosage: 1 DOSAGE FORM (SUPPER)
     Route: 065
  4. MORPHINE [Suspect]
     Active Substance: MORPHINE
     Indication: Migraine
     Dosage: 1 DOSAGE FORM, QD (60/30 MG MORNING)
     Route: 065
  5. MORPHINE [Suspect]
     Active Substance: MORPHINE
     Dosage: 1 DOSAGE FORM, QD (60 MG SUPPER)
     Route: 065
  6. PREGABALIN [Suspect]
     Active Substance: PREGABALIN
     Indication: Migraine
     Dosage: UNK
     Route: 065
  7. ATORVASTATIN CALCIUM [Suspect]
     Active Substance: ATORVASTATIN CALCIUM
     Indication: Migraine
     Dosage: 1 DOSAGE FORM (BED TIME)
     Route: 065
  8. ATORVASTATIN CALCIUM [Suspect]
     Active Substance: ATORVASTATIN CALCIUM
     Dosage: 1 DOSAGE FORM
     Route: 065
  9. MOMETASONE FUROATE [Suspect]
     Active Substance: MOMETASONE FUROATE
     Indication: Product used for unknown indication
     Dosage: 2 DOSAGE FORM
  10. MOMETASONE FUROATE [Suspect]
     Active Substance: MOMETASONE FUROATE
     Dosage: 2 DOSAGE FORM
  11. MOMETASONE FUROATE [Suspect]
     Active Substance: MOMETASONE FUROATE
     Dosage: 2 DOSAGE FORM
  12. MOMETASONE FUROATE [Suspect]
     Active Substance: MOMETASONE FUROATE
     Dosage: 2 DOSAGE FORM
  13. MOMETASONE FUROATE [Suspect]
     Active Substance: MOMETASONE FUROATE
     Dosage: 2 DOSAGE FORM
  14. MOMETASONE FUROATE [Suspect]
     Active Substance: MOMETASONE FUROATE
     Dosage: 2 DOSAGE FORM
  15. RABEPRAZOLE SODIUM [Suspect]
     Active Substance: RABEPRAZOLE SODIUM
     Indication: Migraine
     Dosage: 1 DOSAGE FORM, QD
     Route: 065
  16. DOCUSATE [Suspect]
     Active Substance: DOCUSATE
     Indication: Migraine
     Dosage: 3 DOSAGE FORM, (MORNING)
     Route: 065
  17. DOCUSATE [Suspect]
     Active Substance: DOCUSATE
     Dosage: 1 DOSAGE FORM (BET TIME)
     Route: 065
  18. CIPROFLOXACIN [Suspect]
     Active Substance: CIPROFLOXACIN
     Indication: Migraine
     Dosage: 1 DOSAGE FORM, BID
     Route: 065
  19. SULFASALAZINE [Suspect]
     Active Substance: SULFASALAZINE
     Indication: Migraine
     Dosage: UNK
     Route: 065
  20. ASMANEX [Suspect]
     Active Substance: MOMETASONE FUROATE
     Indication: Product used for unknown indication
     Dosage: 2 DOSAGE FORM (MORNING)
  21. ASMANEX [Suspect]
     Active Substance: MOMETASONE FUROATE
     Dosage: 2 DOSAGE FORM (LUNCH)
  22. ASMANEX [Suspect]
     Active Substance: MOMETASONE FUROATE
     Dosage: 2 DOSAGE FORM (SUPPER)
  23. AMITRIPTYLINE [Suspect]
     Active Substance: AMITRIPTYLINE
     Indication: Product used for unknown indication
     Dosage: 2 DOSAGE FORM (SUPPER)
     Route: 065
  24. AMITRIPTYLINE [Suspect]
     Active Substance: AMITRIPTYLINE
     Dosage: 4 DOSAGE FORM (BED TIME)
     Route: 065
  25. BISACODYL [Suspect]
     Active Substance: BISACODYL
     Indication: Product used for unknown indication
     Dosage: 1 DOSAGE FORM
     Route: 065
  26. PREDNISONE [Concomitant]
     Active Substance: PREDNISONE
     Indication: Product used for unknown indication
     Dosage: UNK (1 TABLET EACH MORNING FOR 5 DAYS THEN START 5 MG )
     Route: 065
  27. PREDNISONE [Concomitant]
     Active Substance: PREDNISONE
     Dosage: UNK (2 TABLETS FOUR TIMES DAILY FOR FIVE DAYS)
     Route: 065
  28. PREDNISONE [Concomitant]
     Active Substance: PREDNISONE
     Dosage: UNK
     Route: 065
  29. PREDNISONE [Concomitant]
     Active Substance: PREDNISONE
     Dosage: UNK
     Route: 065
  30. PREDNISONE [Concomitant]
     Active Substance: PREDNISONE
     Dosage: UNK
     Route: 065
  31. BIAXIN [Concomitant]
     Active Substance: CLARITHROMYCIN
     Indication: Product used for unknown indication
     Dosage: 2 DOSAGE FORM, QD
     Route: 065
  32. AVELOX [Concomitant]
     Active Substance: MOXIFLOXACIN HYDROCHLORIDE
     Indication: Product used for unknown indication
     Dosage: 1 DOSAGE FORM, QD
     Route: 065
  33. CEPHALEXIN MONOHYDRATE [Concomitant]
     Active Substance: CEPHALEXIN MONOHYDRATE
     Indication: Product used for unknown indication
     Dosage: 1 DOSAGE FORM, QID
     Route: 065
  34. MOXIFLOXACIN HYDROCHLORIDE [Concomitant]
     Active Substance: MOXIFLOXACIN HYDROCHLORIDE
     Indication: Product used for unknown indication
     Dosage: 1 DOSAGE FORM, QD
     Route: 065

REACTIONS (13)
  - Asthma [Unknown]
  - Drug intolerance [Unknown]
  - Dysarthria [Unknown]
  - Oedema [Unknown]
  - Sitting disability [Unknown]
  - Speech disorder [Unknown]
  - Limb injury [Unknown]
  - Respiration abnormal [Unknown]
  - Dyskinesia [Unknown]
  - Pain [Unknown]
  - Dizziness [Unknown]
  - Clumsiness [Unknown]
  - Off label use [Unknown]

NARRATIVE: CASE EVENT DATE: 20190901
